FAERS Safety Report 14280716 (Version 3)
Quarter: 2017Q4

REPORT INFORMATION
  Report Type: Report from Study
  Country: IE (occurrence: IE)
  Receive Date: 20171213
  Receipt Date: 20171229
  Transmission Date: 20180321
  Serious: Yes (Hospitalization)
  Sender: FDA-Public Use
  Company Number: US-ASTRAZENECA-2017SF22172

PATIENT
  Age: 10 Month
  Sex: Female

DRUGS (1)
  1. SYNAGIS [Suspect]
     Active Substance: PALIVIZUMAB
     Indication: PREMATURE BABY
     Route: 030
     Dates: start: 20171026

REACTIONS (7)
  - Cough [Recovering/Resolving]
  - Bronchitis [Recovering/Resolving]
  - Respiratory rate increased [Recovering/Resolving]
  - Rhinitis [Recovering/Resolving]
  - Wheezing [Recovering/Resolving]
  - Poor feeding infant [Recovering/Resolving]
  - Bronchiolitis [Recovering/Resolving]

NARRATIVE: CASE EVENT DATE: 201711
